FAERS Safety Report 8881642 (Version 2)
Quarter: 2014Q1

REPORT INFORMATION
  Report Type: Spontaneous
  Country: US (occurrence: US)
  Receive Date: 20121102
  Receipt Date: 20140210
  Transmission Date: 20141002
  Serious: No
  Sender: FDA-Public Use
  Company Number: US-ASTRAZENECA-2012SE79555

PATIENT
  Age: 48 Year
  Sex: Female
  Weight: 78.9 kg

DRUGS (7)
  1. SEROQUEL [Suspect]
     Indication: SLEEP DISORDER
     Route: 048
  2. NEXIUM [Suspect]
     Indication: DYSPEPSIA
     Route: 048
     Dates: start: 2013, end: 201401
  3. NITROSTAT [Concomitant]
     Indication: CHEST PAIN
     Route: 048
  4. EFFEXOR [Concomitant]
     Indication: ANXIETY
     Route: 048
  5. AMITRIPTYLLINE [Concomitant]
     Indication: MEMORY IMPAIRMENT
     Route: 048
  6. NEURONTIN [Concomitant]
     Indication: NEUROPATHY PERIPHERAL
     Route: 048
  7. REMERON [Concomitant]
     Route: 048

REACTIONS (8)
  - Accident at work [Unknown]
  - Back pain [Unknown]
  - Memory impairment [Unknown]
  - Chest pain [Unknown]
  - Dyspepsia [Unknown]
  - Off label use [Unknown]
  - Intentional drug misuse [Unknown]
  - Drug dose omission [Unknown]
